FAERS Safety Report 7577892-0 (Version None)
Quarter: 2011Q2

REPORT INFORMATION
  Report Type: 
  Country: None (occurrence: None)
  Receive Date: 20110628
  Receipt Date: 20110620
  Transmission Date: 20111010
  Serious: No
  Sender: FDA-Public Use
  Company Number: PHHY2011US54201

PATIENT
  Sex: Female

DRUGS (5)
  1. METFORMIN HCL [Concomitant]
  2. RAMIPRIL [Concomitant]
  3. TASIGNA [Suspect]
     Dosage: 400 MG, BID
  4. LANTUS [Concomitant]
  5. SYNTHROID [Concomitant]

REACTIONS (1)
  - PRURITUS [None]
